FAERS Safety Report 9164952 (Version 1)
Quarter: 2013Q1

REPORT INFORMATION
  Report Type: Spontaneous
  Country: US (occurrence: US)
  Receive Date: 20130315
  Receipt Date: 20130315
  Transmission Date: 20140127
  Serious: Yes (Hospitalization)
  Sender: FDA-Public Use
  Company Number: US-GENZYME-FABR-1003099

PATIENT
  Age: 53 Year
  Sex: Male
  Weight: 81.8 kg

DRUGS (1)
  1. FABRAZYME [Suspect]
     Indication: FABRY^S DISEASE
     Dosage: 0.44 MG/KG, 1X/W
     Route: 042

REACTIONS (1)
  - Lower limb fracture [Not Recovered/Not Resolved]
